FAERS Safety Report 7829285-6 (Version None)
Quarter: 2011Q4

REPORT INFORMATION
  Report Type: 
  Country: None (occurrence: None)
  Receive Date: 20111020
  Receipt Date: 20111011
  Transmission Date: 20120403
  Serious: Yes (Other)
  Sender: FDA-Public Use
  Company Number: US-ALLERGAN-1113422US

PATIENT
  Age: 46 Year
  Sex: Female
  Weight: 54.875 kg

DRUGS (2)
  1. CLONAZEPAM [Concomitant]
     Indication: ANXIETY
     Dosage: UNK
  2. BOTOX COSMETIC [Suspect]
     Indication: SKIN WRINKLING
     Dosage: UNK
     Route: 003
     Dates: start: 20100504, end: 20100504

REACTIONS (10)
  - MALAISE [None]
  - ANXIETY [None]
  - DYSPHAGIA [None]
  - HYPERTENSION [None]
  - LETHARGY [None]
  - INSOMNIA [None]
  - DRY MOUTH [None]
  - THROAT IRRITATION [None]
  - DRY EYE [None]
  - HYPOHIDROSIS [None]
